FAERS Safety Report 4447213-0 (Version None)
Quarter: 2004Q3

REPORT INFORMATION
  Report Type: 
  Country: None (occurrence: None)
  Receive Date: 20040908
  Receipt Date: 20040908
  Transmission Date: 20050211
  Serious: Yes (Hospitalization)
  Sender: FDA-Public Use
  Company Number: None

PATIENT
  Age: 61 Year
  Sex: Male
  Weight: 73.2 kg

DRUGS (14)
  1. CISPLATIN [Suspect]
     Indication: SMALL CELL LUNG CANCER STAGE UNSPECIFIED
     Dosage: 115 MG  ONCE   INTRAVENOUS
     Route: 042
     Dates: start: 20040901, end: 20040901
  2. ETOPOSIDE [Suspect]
     Indication: SMALL CELL LUNG CANCER STAGE UNSPECIFIED
     Dosage: 230 MG  ONCE   INTRAVENOUS
     Route: 042
     Dates: start: 20040901, end: 20040901
  3. ASPIRIN [Concomitant]
  4. KEPPRA [Concomitant]
  5. TERAZOSIN HCL [Concomitant]
  6. OLANZAPINE [Concomitant]
  7. MULTI-VITAMIN [Concomitant]
  8. DIPHENOXYLATE [Concomitant]
  9. ATROPINE [Concomitant]
  10. PHENYTOIN [Concomitant]
  11. ETOPOSIDE [Concomitant]
  12. ZOFRAN [Concomitant]
  13. PROCHLORPERAZINE [Concomitant]
  14. EXTERNAL BEAM RADIATION THERAPY [Concomitant]

REACTIONS (6)
  - AGGRESSION [None]
  - CONFUSIONAL STATE [None]
  - DELIRIUM [None]
  - DELUSION [None]
  - DISORIENTATION [None]
  - URINARY TRACT INFECTION [None]
